FAERS Safety Report 8265894-0 (Version None)
Quarter: 2012Q2

REPORT INFORMATION
  Report Type: 
  Country: None (occurrence: None)
  Receive Date: 20120406
  Receipt Date: 20120327
  Transmission Date: 20120825
  Serious: Yes (Other)
  Sender: FDA-Public Use
  Company Number: KE-GLAXOSMITHKLINE-B0792985A

PATIENT
  Age: 1 Year
  Sex: Male

DRUGS (3)
  1. MUCOSOLVAN [Concomitant]
     Indication: UPPER RESPIRATORY TRACT INFECTION
     Dosage: 15ML PER DAY
     Route: 048
     Dates: start: 20120114, end: 20120120
  2. ACETAMINOPHEN [Concomitant]
     Indication: PYREXIA
     Dosage: 10ML PER DAY
     Route: 048
     Dates: start: 20120114
  3. CEFUROXIME [Suspect]
     Indication: UPPER RESPIRATORY TRACT INFECTION
     Dosage: 125MG PER DAY
     Route: 065
     Dates: start: 20120114, end: 20120120

REACTIONS (2)
  - DRUG INEFFECTIVE [None]
  - PRODUCT QUALITY ISSUE [None]
